FAERS Safety Report 19400557 (Version 1)
Quarter: 2021Q2

REPORT INFORMATION
  Report Type: Spontaneous
  Country: CA (occurrence: CA)
  Receive Date: 20210610
  Receipt Date: 20210610
  Transmission Date: 20210717
  Serious: Yes (Life-Threatening, Hospitalization)
  Sender: FDA-Public Use
  Company Number: CA-ALLERGAN-2122072US

PATIENT
  Sex: Male

DRUGS (26)
  1. MORPHINE SULFATE UNK [Interacting]
     Active Substance: MORPHINE SULFATE
     Indication: SPINAL STENOSIS
     Dosage: 420 MG
     Route: 065
  2. MORPHINE SULFATE UNK [Interacting]
     Active Substance: MORPHINE SULFATE
     Dosage: 30 MG
     Route: 048
  3. MORPHINE SULFATE UNK [Interacting]
     Active Substance: MORPHINE SULFATE
     Dosage: 100 MG
     Route: 065
  4. OXYCODONE HYDROCHLORIDE. [Interacting]
     Active Substance: OXYCODONE HYDROCHLORIDE
     Indication: SPINAL STENOSIS
     Dosage: 20 MG
     Route: 048
  5. ESCITALOPRAM OXALATE ? BP [Interacting]
     Active Substance: ESCITALOPRAM OXALATE
     Dosage: OVERDOSE: 140 MILLIGRAM
     Route: 048
  6. LORAZEPAM. [Interacting]
     Active Substance: LORAZEPAM
     Indication: INSOMNIA
     Dosage: 1 MG
     Route: 048
  7. OXYCODONE HYDROCHLORIDE. [Interacting]
     Active Substance: OXYCODONE HYDROCHLORIDE
     Dosage: 10 MG
     Route: 065
  8. ALTACE [Concomitant]
     Active Substance: RAMIPRIL
     Indication: PRODUCT USED FOR UNKNOWN INDICATION
     Route: 065
  9. ESCITALOPRAM OXALATE ? BP [Interacting]
     Active Substance: ESCITALOPRAM OXALATE
     Indication: DEPRESSION
     Dosage: 10 MG
     Route: 065
  10. MORPHINE SULFATE UNK [Interacting]
     Active Substance: MORPHINE SULFATE
     Dosage: 30 MG, QD
     Route: 048
  11. DIAZEPAM. [Interacting]
     Active Substance: DIAZEPAM
     Dosage: UNK
     Route: 048
  12. LORAZEPAM. [Interacting]
     Active Substance: LORAZEPAM
     Dosage: 30 MG
     Route: 048
  13. OXYCODONE HYDROCHLORIDE. [Interacting]
     Active Substance: OXYCODONE HYDROCHLORIDE
     Dosage: UNK
     Route: 048
  14. CITALOPRAM HYDROBROMIDE ? BP [Suspect]
     Active Substance: CITALOPRAM HYDROBROMIDE
     Indication: PRODUCT USED FOR UNKNOWN INDICATION
     Dosage: OVERDOSE : UNKNOWN DOSE
     Route: 048
  15. MORPHINE SULFATE UNK [Interacting]
     Active Substance: MORPHINE SULFATE
     Dosage: 2640 MG
     Route: 065
  16. MORPHINE SULFATE UNK [Interacting]
     Active Substance: MORPHINE SULFATE
     Dosage: UNK
     Route: 048
  17. DIAZEPAM. [Interacting]
     Active Substance: DIAZEPAM
     Dosage: 10 MG
     Route: 065
  18. MORPHINE SULFATE UNK [Interacting]
     Active Substance: MORPHINE SULFATE
     Dosage: 9500 MG
     Route: 065
  19. ACETAMINOPHEN;OXYCODONE HYDROCHLORIDE [Interacting]
     Active Substance: ACETAMINOPHEN\OXYCODONE HYDROCHLORIDE
     Indication: PRODUCT USED FOR UNKNOWN INDICATION
     Route: 048
  20. DIAZEPAM. [Interacting]
     Active Substance: DIAZEPAM
     Indication: SPINAL STENOSIS
     Dosage: 1800 MG
     Route: 048
  21. OXYCODONE HYDROCHLORIDE. [Interacting]
     Active Substance: OXYCODONE HYDROCHLORIDE
     Dosage: UNK
     Route: 065
  22. ZOPICLONE [Interacting]
     Active Substance: ZOPICLONE
     Dosage: 15 MG, QD
     Route: 048
  23. ZOPICLONE [Interacting]
     Active Substance: ZOPICLONE
     Dosage: 7.5 MG
     Route: 065
  24. ESCITALOPRAM OXALATE ? BP [Interacting]
     Active Substance: ESCITALOPRAM OXALATE
     Dosage: 10 MG, QD
     Route: 065
  25. MORPHINE SULFATE UNK [Interacting]
     Active Substance: MORPHINE SULFATE
     Dosage: 15 MG
     Route: 065
  26. ZOPICLONE [Interacting]
     Active Substance: ZOPICLONE
     Indication: INSOMNIA
     Dosage: 187.5 MG
     Route: 048

REACTIONS (21)
  - Intentional overdose [Unknown]
  - Blood potassium increased [Recovered/Resolved]
  - Coma scale abnormal [Recovered/Resolved]
  - Electrocardiogram QT prolonged [Recovered/Resolved]
  - Heart rate decreased [Recovered/Resolved]
  - Blood creatine phosphokinase increased [Recovered/Resolved]
  - Coma [Recovered/Resolved]
  - Loss of consciousness [Recovered/Resolved]
  - Opiates positive [Recovered/Resolved]
  - Oxygen saturation decreased [Recovered/Resolved]
  - Suicide attempt [Recovered/Resolved]
  - Hyperkalaemia [Recovered/Resolved]
  - Sinus tachycardia [Recovered/Resolved]
  - Mechanical ventilation [Recovered/Resolved]
  - Electrocardiogram abnormal [Recovered/Resolved]
  - Blood creatinine increased [Recovered/Resolved]
  - Hypotension [Recovered/Resolved]
  - Bradycardia [Recovered/Resolved]
  - Drug interaction [Unknown]
  - Blood pressure decreased [Recovered/Resolved]
  - Overdose [Unknown]
